FAERS Safety Report 21713383 (Version 2)
Quarter: 2023Q1

REPORT INFORMATION
  Report Type: Spontaneous
  Country: US (occurrence: US)
  Receive Date: 20221212
  Receipt Date: 20230120
  Transmission Date: 20230418
  Serious: No
  Sender: FDA-Public Use
  Company Number: US-BRISTOL-MYERS SQUIBB COMPANY-2022-151377

PATIENT
  Age: 76 Year
  Sex: Female
  Weight: 68.95 kg

DRUGS (1)
  1. POMALYST [Suspect]
     Active Substance: POMALIDOMIDE
     Indication: Plasma cell myeloma
     Route: 048
     Dates: start: 20220901

REACTIONS (5)
  - Fatigue [Recovering/Resolving]
  - Diarrhoea [Recovered/Resolved]
  - Laboratory test abnormal [Recovering/Resolving]
  - Anaemia [Recovering/Resolving]
  - Influenza [Unknown]
